FAERS Safety Report 7462479-0 (Version None)
Quarter: 2011Q2

REPORT INFORMATION
  Report Type: 
  Country: None (occurrence: None)
  Receive Date: 20110506
  Receipt Date: 20100719
  Transmission Date: 20111010
  Serious: No
  Sender: FDA-Public Use
  Company Number: US-BAYER-201028368NA

PATIENT
  Age: 23 Year
  Sex: Female
  Weight: 56.818 kg

DRUGS (2)
  1. YASMIN [Suspect]
     Indication: CONTRACEPTION
     Route: 048
     Dates: start: 20100616
  2. PLAN B [Suspect]
     Indication: CONTRACEPTION
     Dosage: ONE-STEP
     Dates: start: 20100614, end: 20100614

REACTIONS (3)
  - HEADACHE [None]
  - NAUSEA [None]
  - ABDOMINAL PAIN [None]
